FAERS Safety Report 13390827 (Version 1)
Quarter: 2017Q1

REPORT INFORMATION
  Report Type: Spontaneous
  Country: FR (occurrence: FR)
  Receive Date: 20170331
  Receipt Date: 20170331
  Transmission Date: 20170429
  Serious: Yes (Other)
  Sender: FDA-Public Use
  Company Number: FR-GUERBET LLC-1064863

PATIENT
  Age: 56 Year
  Sex: Female

DRUGS (4)
  1. XANAX [Concomitant]
     Active Substance: ALPRAZOLAM
     Route: 048
  2. IRBESARTAN. [Concomitant]
     Active Substance: IRBESARTAN
     Route: 048
  3. OPTIRAY [Suspect]
     Active Substance: IOVERSOL
     Indication: SCAN
     Route: 042
     Dates: start: 20160302, end: 20160302
  4. PANTOPRAZOLE SODIUM. [Concomitant]
     Active Substance: PANTOPRAZOLE SODIUM
     Route: 048

REACTIONS (1)
  - Fixed drug eruption [Recovered/Resolved]

NARRATIVE: CASE EVENT DATE: 20160304
